FAERS Safety Report 7458593-6 (Version None)
Quarter: 2011Q2

REPORT INFORMATION
  Report Type: 
  Country: None (occurrence: None)
  Receive Date: 20110504
  Receipt Date: 20110427
  Transmission Date: 20111010
  Serious: Yes (Hospitalization, Other)
  Sender: FDA-Public Use
  Company Number: FR-PFIZER INC-2011090289

PATIENT
  Age: 37 Year
  Sex: Female

DRUGS (4)
  1. PROPOFAN [Suspect]
     Dosage: UNK
     Dates: start: 20110225, end: 20110228
  2. PROPOFAN [Suspect]
     Indication: PAIN
     Dosage: 6 DF DAILY
     Route: 048
     Dates: start: 20110225, end: 20110228
  3. CELEBREX [Suspect]
     Indication: SCIATICA
     Dosage: 1 DF, 1X/DAY
     Route: 048
     Dates: start: 20110225, end: 20110228
  4. PARIET [Suspect]
     Indication: PROPHYLAXIS
     Dosage: 20 MG, 1X/DAY
     Route: 048
     Dates: start: 20110225, end: 20110228

REACTIONS (4)
  - GAMMA-GLUTAMYLTRANSFERASE INCREASED [None]
  - TRANSAMINASES INCREASED [None]
  - ABDOMINAL PAIN UPPER [None]
  - CYSTITIS [None]
